FAERS Safety Report 8834489 (Version 2)
Quarter: 2013Q1

REPORT INFORMATION
  Report Type: Report from Study
  Country: JP (occurrence: JP)
  Receive Date: 20121010
  Receipt Date: 20130102
  Transmission Date: 20140127
  Serious: Yes (Hospitalization, Other)
  Sender: FDA-Public Use
  Company Number: JP-VERTEX PHARMACEUTICAL INC.-AE-2012-009014

PATIENT
  Age: 68 Year
  Sex: Male

DRUGS (5)
  1. VX-950 (TELAPREVIR) [Suspect]
     Indication: CHRONIC HEPATITIS C
     Dosage: 2250 MG, QD
     Route: 048
     Dates: start: 20120403, end: 20120613
  2. RIBAVIRIN [Concomitant]
     Dosage: 600 MG, QD
     Route: 048
     Dates: start: 20120403
  3. PEGINTERFERON ALFA-2B [Concomitant]
     Dosage: 1.5 ?G/KG, QW
     Route: 058
     Dates: start: 20120403, end: 20120409
  4. PEGINTERFERON ALFA-2B [Concomitant]
     Dosage: 1 ?G/KG,QW
     Route: 058
     Dates: start: 20120410
  5. ZYLORIC [Concomitant]
     Dosage: 100 DF, QD
     Route: 048
     Dates: start: 20120410

REACTIONS (3)
  - Erythema multiforme [Recovered/Resolved]
  - Rash [Recovered/Resolved]
  - Platelet count decreased [Not Recovered/Not Resolved]
